FAERS Safety Report 5654579-2 (Version None)
Quarter: 2008Q1

REPORT INFORMATION
  Report Type: 
  Country: None (occurrence: None)
  Receive Date: 20080307
  Receipt Date: 20080304
  Transmission Date: 20080703
  Serious: Yes (Hospitalization)
  Sender: FDA-Public Use
  Company Number: DE-BRISTOL-MYERS SQUIBB COMPANY-12964466

PATIENT
  Age: 50 Year
  Sex: Female
  Weight: 64 kg

DRUGS (10)
  1. CYCLOPHOSPHAMIDE [Suspect]
     Indication: BREAST CANCER
     Dosage: 09MAY05-09MAY05,IV
     Route: 042
     Dates: start: 20050420, end: 20050420
  2. PACLITAXEL [Suspect]
     Indication: BREAST CANCER
     Route: 042
     Dates: start: 20050323, end: 20050323
  3. EPIRUBICIN [Suspect]
     Indication: BREAST CANCER
     Route: 042
     Dates: start: 20050112, end: 20050112
  4. KEVATRIL [Concomitant]
     Dosage: DOSE UNIT = AMPULE
     Route: 042
     Dates: start: 20050420, end: 20050420
  5. DEXAMETHASONE TAB [Concomitant]
     Route: 042
     Dates: start: 20050420, end: 20050420
  6. UROMITEXAN [Concomitant]
     Route: 042
     Dates: start: 20050420, end: 20050420
  7. PEGFILGRASTIM [Concomitant]
     Dosage: DOSE UNIT = AMPULE,DATE:10-10MAY05,SC,1INJECTION.13-13JAN05
     Route: 058
     Dates: start: 20050421, end: 20050421
  8. DARBEPOETIN ALFA [Concomitant]
     Dosage: DOSE UNIT = AMPULE,09-09MAY05,SC;12-12JAN05,SC,300MG.
     Route: 058
     Dates: start: 20050420, end: 20050420
  9. DARBEPOETIN ALFA [Concomitant]
     Route: 058
     Dates: start: 20050509, end: 20050509
  10. NEULASTA [Concomitant]
     Route: 058
     Dates: start: 20050510, end: 20050510

REACTIONS (2)
  - LEUKOPENIA [None]
  - NEUTROPENIA [None]
